FAERS Safety Report 8055853-5 (Version None)
Quarter: 2012Q1

REPORT INFORMATION
  Report Type: 
  Country: None (occurrence: None)
  Receive Date: 20120119
  Receipt Date: 20120119
  Transmission Date: 20120608
  Serious: Yes (Death)
  Sender: FDA-Public Use
  Company Number: None

PATIENT
  Sex: Male
  Weight: 88.904 kg

DRUGS (2)
  1. PLAVIX [Suspect]
     Dosage: 75 MG
     Route: 048
  2. COUMADIN [Concomitant]
     Dosage: 7.5 MG
     Route: 048

REACTIONS (4)
  - CEREBRAL HAEMORRHAGE [None]
  - UNRESPONSIVE TO STIMULI [None]
  - HEADACHE [None]
  - RESPIRATORY ARREST [None]
